FAERS Safety Report 9505208 (Version 1)
Quarter: 2013Q1

REPORT INFORMATION
  Report Type: Spontaneous
  Country: US (occurrence: None)
  Receive Date: 20130225
  Receipt Date: 20130225
  Transmission Date: 20140127
  Serious: No
  Sender: FDA-Public Use
  Company Number: 368485

PATIENT
  Age: 67 Year
  Sex: Female

DRUGS (1)
  1. VICTOZA [Suspect]
     Indication: TYPE 2 DIABETES MELLITUS
     Dosage: 1.8 MG, QD , SUBCUTANEOUS
     Route: 058

REACTIONS (8)
  - Dizziness [None]
  - Back pain [None]
  - Fatigue [None]
  - Food craving [None]
  - Blood glucose decreased [None]
  - Constipation [None]
  - Eructation [None]
  - Flatulence [None]
